FAERS Safety Report 6636492-7 (Version None)
Quarter: 2010Q1

REPORT INFORMATION
  Report Type: 
  Country: None (occurrence: None)
  Receive Date: 20100316
  Receipt Date: 20100101
  Transmission Date: 20100710
  Serious: Yes (Other)
  Sender: FDA-Public Use
  Company Number: US-BAYER-201010342NA

PATIENT
  Sex: Female

DRUGS (1)
  1. YAZ [Suspect]
     Indication: DRUG USE FOR UNKNOWN INDICATION
     Dosage: THERE WERE 6 ACTIVE TABLETS IN THE PACKAGE WHEN CONSUMER STOPPED TREATMENT
     Route: 048
     Dates: start: 20070101, end: 20091231

REACTIONS (1)
  - ANGINA PECTORIS [None]
